FAERS Safety Report 16623333 (Version 1)
Quarter: 2019Q3

REPORT INFORMATION
  Report Type: Report from Study
  Country: US (occurrence: US)
  Receive Date: 20190724
  Receipt Date: 20190724
  Transmission Date: 20191004
  Serious: Yes (Hospitalization, Other)
  Sender: FDA-Public Use
  Company Number: US-KAMADA LIMITED-2018US011409

PATIENT

DRUGS (4)
  1. GLASSIA [Suspect]
     Active Substance: .ALPHA.1-PROTEINASE INHIBITOR HUMAN
     Dosage: 7 BOTTLES, 1/WEEK
     Route: 042
     Dates: start: 2018
  2. STEROIDS [Concomitant]
     Active Substance: UNSPECIFIED INGREDIENT
  3. GLASSIA [Suspect]
     Active Substance: .ALPHA.1-PROTEINASE INHIBITOR HUMAN
     Indication: ALPHA-1 ANTI-TRYPSIN DEFICIENCY
     Dosage: 6 BOTTLES, 1/WEEK
     Route: 042
     Dates: start: 201706
  4. GLASSIA [Suspect]
     Active Substance: .ALPHA.1-PROTEINASE INHIBITOR HUMAN
     Dosage: 6 BOTTLES, 1/WEEK
     Route: 042
     Dates: start: 2018

REACTIONS (9)
  - Respiratory failure [Not Recovered/Not Resolved]
  - Cardiac pacemaker insertion [Unknown]
  - Loss of consciousness [Unknown]
  - Anaemia [Not Recovered/Not Resolved]
  - Insomnia [Unknown]
  - Fibula fracture [Unknown]
  - Product dose omission [Unknown]
  - Fall [Unknown]
  - Blood iron decreased [Unknown]

NARRATIVE: CASE EVENT DATE: 2018
